FAERS Safety Report 9783323 (Version 1)
Quarter: 2013Q4

REPORT INFORMATION
  Report Type: Spontaneous
  Country: US (occurrence: US)
  Receive Date: 20131226
  Receipt Date: 20131226
  Transmission Date: 20140711
  Serious: Yes (Hospitalization, Other)
  Sender: FDA-Public Use
  Company Number: US-BAYER-2013-155489

PATIENT
  Sex: Male

DRUGS (1)
  1. YAZ [Suspect]
     Route: 064

REACTIONS (7)
  - Premature baby [None]
  - Cyanosis neonatal [None]
  - Food intolerance [None]
  - Cerebral haemorrhage [None]
  - Gastrointestinal disorder [None]
  - Lung disorder [None]
  - Pulmonary malformation [None]
